FAERS Safety Report 17669636 (Version 1)
Quarter: 2020Q2

REPORT INFORMATION
  Report Type: Spontaneous
  Country: US (occurrence: US)
  Receive Date: 20200414
  Receipt Date: 20200414
  Transmission Date: 20200713
  Serious: Yes (Hospitalization)
  Sender: FDA-Public Use
  Company Number: None

PATIENT
  Age: 33 Year
  Sex: Female

DRUGS (2)
  1. PLAVIX [Suspect]
     Active Substance: CLOPIDOGREL BISULFATE
  2. VALIUM [Suspect]
     Active Substance: DIAZEPAM

REACTIONS (3)
  - Intentional self-injury [None]
  - Skin laceration [None]
  - Suicide attempt [None]

NARRATIVE: CASE EVENT DATE: 20200322
